FAERS Safety Report 9210704 (Version 1)
Quarter: 2013Q2

REPORT INFORMATION
  Report Type: Spontaneous
  Country: US (occurrence: US)
  Receive Date: 20130404
  Receipt Date: 20130404
  Transmission Date: 20140414
  Serious: Yes (Hospitalization)
  Sender: FDA-Public Use
  Company Number: US-GLAXOSMITHKLINE-A1018079A

PATIENT
  Age: 47 Year
  Sex: Female

DRUGS (5)
  1. ZANTAC [Suspect]
     Indication: GASTRIC DISORDER
     Dosage: 150MG SINGLE DOSE
     Route: 048
     Dates: start: 20130323, end: 20130323
  2. METHADONE [Concomitant]
  3. ANTI-ANXIETY MED- NAME UNKNOWN [Concomitant]
  4. BLOOD PRESSURE MEDICATION [Concomitant]
  5. PAIN MEDICATIONS [Concomitant]

REACTIONS (3)
  - Convulsion [Recovered/Resolved]
  - Expired drug administered [Unknown]
  - Drug administration error [Unknown]
